FAERS Safety Report 6104758-5 (Version None)
Quarter: 2009Q1

REPORT INFORMATION
  Report Type: 
  Country: None (occurrence: None)
  Receive Date: 20090304
  Receipt Date: 20090304
  Transmission Date: 20090719
  Serious: Yes (Life-Threatening)
  Sender: FDA-Public Use
  Company Number: None

PATIENT
  Age: 41 Year
  Sex: Female
  Weight: 99.7913 kg

DRUGS (1)
  1. BUPROPION HCL [Suspect]
     Indication: DEPRESSION
     Dosage: 150 MG ONE  A DAY PO
     Route: 048
     Dates: start: 20080405, end: 20080424

REACTIONS (3)
  - NERVOUSNESS [None]
  - PRODUCT QUALITY ISSUE [None]
  - SUICIDAL IDEATION [None]
